FAERS Safety Report 4493609-0 (Version None)
Quarter: 2004Q4

REPORT INFORMATION
  Report Type: 
  Country: None (occurrence: None)
  Receive Date: 20041102
  Receipt Date: 20041022
  Transmission Date: 20050328
  Serious: Yes (Other)
  Sender: FDA-Public Use
  Company Number: 2004241298US

PATIENT
  Sex: Female
  Weight: 81.6475 kg

DRUGS (13)
  1. BEXTRA [Suspect]
     Indication: ARTHRITIS
     Dosage: QD ORAL
     Route: 048
  2. CELEBREX [Suspect]
     Indication: ARTHRITIS
     Dosage: QD 200 MG TID OR QD ORAL
     Route: 048
     Dates: start: 20020101
  3. PERCOCET    (OXYCODONE HYDROCHLORIDE, OXYCODONE TEREPTHALATE) [Concomitant]
  4. PHENERGAN ^SPECIA^ [Concomitant]
  5. PHENOBARBITAL TAB [Concomitant]
  6. FLEXERIL [Concomitant]
  7. DILANTIN [Concomitant]
  8. MECLIZINE [Concomitant]
  9. OXAPROZIN [Concomitant]
  10. IMDUR [Concomitant]
  11. LASIX [Concomitant]
  12. K-DUR 10 [Concomitant]
  13. COUMADIN [Concomitant]

REACTIONS (3)
  - CEREBROVASCULAR ACCIDENT [None]
  - DRUG INEFFECTIVE [None]
  - TRANSIENT ISCHAEMIC ATTACK [None]
